FAERS Safety Report 8564213 (Version 2)
Quarter: 2012Q4

REPORT INFORMATION
  Report Type: Report from Study
  Country: JP (occurrence: JP)
  Receive Date: 20120516
  Receipt Date: 20121228
  Transmission Date: 20130627
  Serious: Yes (Other)
  Sender: FDA-Public Use
  Company Number: JP-VERTEX PHARMACEUTICALS INC.-AE-2012-006754

PATIENT
  Age: 64 Year
  Sex: Male

DRUGS (28)
  1. VX-950 (TELAPREVIR) [Suspect]
     Indication: CHRONIC HEPATITIS C
     Dosage: 2250 mg, qd
     Route: 048
     Dates: start: 20120131, end: 20120227
  2. VX-950 (TELAPREVIR) [Suspect]
     Dosage: 1500 mg, qd
     Route: 048
     Dates: start: 20120228, end: 20120319
  3. RIBAVIRIN [Suspect]
     Indication: CHRONIC HEPATITIS C
     Dosage: 600 mg, qd
     Route: 048
     Dates: start: 20120131
  4. PEGINTERFERON ALFA-2B [Concomitant]
     Indication: CHRONIC HEPATITIS C
     Dosage: 1.5 ?g/kg, qw
     Route: 058
     Dates: start: 20120131
  5. GLYCYRON                           /00466401/ [Concomitant]
     Dosage: combination tablets, in three doses
     Route: 048
     Dates: end: 20120206
  6. APORASNON [Concomitant]
     Dosage: 25 mg, qd
     Route: 048
     Dates: end: 20120206
  7. ACTOS [Concomitant]
     Dosage: 30 mg, qd
     Route: 048
     Dates: end: 20120206
  8. ACTOS [Concomitant]
     Dosage: 30 mg, qd
     Route: 048
     Dates: start: 20120207, end: 20120220
  9. ACTOS [Concomitant]
     Dosage: 30 mg, qd
     Route: 048
     Dates: start: 20120306, end: 20120402
  10. ACTOS [Concomitant]
     Dosage: 30 mg, qd
     Route: 048
     Dates: start: 20120410
  11. CORINAEL CR [Concomitant]
     Dosage: 40 mg, qd
     Route: 048
     Dates: end: 20120206
  12. AMARYL [Concomitant]
     Dosage: 2 mg, qd
     Route: 048
     Dates: end: 20120220
  13. AMARYL [Concomitant]
     Dosage: 2 mg, qd
     Route: 048
     Dates: start: 20120306, end: 20120402
  14. AMARYL [Concomitant]
     Dosage: 2 mg, qd
     Route: 048
     Dates: start: 20120410
  15. VITANEURIN                         /02072701/ [Concomitant]
     Dosage: 100 mg, qd
     Route: 048
     Dates: end: 20120220
  16. VITANEURIN                         /02072701/ [Concomitant]
     Dosage: 100 mg, qd
     Route: 048
     Dates: start: 20120306, end: 20120402
  17. VITANEURIN                         /02072701/ [Concomitant]
     Dosage: 100 mg, qd
     Route: 048
     Dates: start: 20120410
  18. EVAMYL [Concomitant]
     Dosage: 1 mg, prn
     Route: 048
  19. MUCOSTA [Concomitant]
     Dosage: 100 mg, prn
     Route: 048
  20. VOGLIBOSE [Concomitant]
     Dosage: 0.6 mg, qd
     Route: 048
     Dates: end: 20120206
  21. ALDACTONE A [Concomitant]
     Dosage: 25 mg, qd
     Route: 048
     Dates: start: 20120207, end: 20120220
  22. BASEN OD [Concomitant]
     Dosage: 0.6 mg, qd
     Route: 048
     Dates: start: 20120207, end: 20120220
  23. BASEN OD [Concomitant]
     Dosage: 0.6 mg, qd
     Route: 048
     Dates: start: 20120327
  24. ADALAT-CR [Concomitant]
     Dosage: 40 mg, qd
     Route: 048
     Dates: start: 20120207, end: 20120220
  25. ADALAT-CR [Concomitant]
     Dosage: 40 mg, qd
     Route: 048
     Dates: start: 20120306, end: 20120402
  26. ADALAT-CR [Concomitant]
     Dosage: 40 mg, qd
     Route: 048
     Dates: start: 20120410
  27. ZYLORIC [Concomitant]
     Dosage: 100 mg, qd
     Route: 048
     Dates: start: 20120228
  28. GASTER [Concomitant]
     Dosage: 20 mg, qd
     Route: 048
     Dates: start: 20120321, end: 20120403

REACTIONS (1)
  - Rash [Recovered/Resolved]
